FAERS Safety Report 6016394-X (Version None)
Quarter: 2008Q4

REPORT INFORMATION
  Report Type: 
  Country: None (occurrence: None)
  Receive Date: 20081218
  Receipt Date: 20081201
  Transmission Date: 20090506
  Serious: Yes (Death)
  Sender: FDA-Public Use
  Company Number: ADE# 08-200

PATIENT
  Sex: Male

DRUGS (1)
  1. CARBAMAZEPINE TABLETS MANUFACTURED BY CARACO [Suspect]

REACTIONS (7)
  - ABNORMAL BEHAVIOUR [None]
  - CONVULSION [None]
  - DRUG INEFFECTIVE [None]
  - PRODUCT QUALITY ISSUE [None]
  - PSYCHOMOTOR HYPERACTIVITY [None]
  - SPEECH DISORDER [None]
  - THINKING ABNORMAL [None]
